FAERS Safety Report 14840727 (Version 3)
Quarter: 2020Q1

REPORT INFORMATION
  Report Type: Spontaneous
  Country: TR (occurrence: TR)
  Receive Date: 20180503
  Receipt Date: 20200214
  Transmission Date: 20200409
  Serious: Yes (Hospitalization, Other)
  Sender: FDA-Public Use
  Company Number: TR-ASTELLAS-2018US020554

PATIENT
  Age: 82 Year
  Sex: Male

DRUGS (10)
  1. XTANDI [Suspect]
     Active Substance: ENZALUTAMIDE
     Indication: HORMONE-REFRACTORY PROSTATE CANCER
     Route: 048
     Dates: start: 201801
  2. XTANDI [Suspect]
     Active Substance: ENZALUTAMIDE
     Route: 048
  3. DOCETAXEL. [Concomitant]
     Active Substance: DOCETAXEL
     Indication: PRODUCT USED FOR UNKNOWN INDICATION
     Dosage: UNK UNK, UNKNOWN FREQ.
     Route: 065
  4. ZOLEDRONIC ACID. [Concomitant]
     Active Substance: ZOLEDRONIC ACID
     Route: 065
  5. ZOLEDRONIC ACID. [Concomitant]
     Active Substance: ZOLEDRONIC ACID
     Indication: HORMONE-REFRACTORY PROSTATE CANCER
     Route: 048
  6. XTANDI [Suspect]
     Active Substance: ENZALUTAMIDE
     Route: 048
  7. XTANDI [Suspect]
     Active Substance: ENZALUTAMIDE
     Route: 048
  8. XTANDI [Suspect]
     Active Substance: ENZALUTAMIDE
     Route: 048
  9. XTANDI [Suspect]
     Active Substance: ENZALUTAMIDE
     Route: 048
  10. XTANDI [Suspect]
     Active Substance: ENZALUTAMIDE
     Route: 048

REACTIONS (7)
  - Malignant neoplasm progression [Unknown]
  - Asthenia [Not Recovered/Not Resolved]
  - Bone pain [Recovering/Resolving]
  - Fatigue [Recovering/Resolving]
  - Drug ineffective [Unknown]
  - Pain [Unknown]
  - General physical health deterioration [Unknown]

NARRATIVE: CASE EVENT DATE: 201803
